FAERS Safety Report 12572298 (Version 7)
Quarter: 2016Q4

REPORT INFORMATION
  Report Type: Report from Study
  Country: US (occurrence: US)
  Receive Date: 20160719
  Receipt Date: 20161111
  Transmission Date: 20170207
  Serious: Yes (Other)
  Sender: FDA-Public Use
  Company Number: PHEH2016US017810

PATIENT
  Age: 4 Year
  Sex: Male
  Weight: 18.6 kg

DRUGS (3)
  1. KEPPRA [Concomitant]
     Active Substance: LEVETIRACETAM
     Indication: EPILEPSY
     Dosage: 100 MG, BID
     Route: 048
     Dates: start: 20140918
  2. VIGABATRIN [Concomitant]
     Active Substance: VIGABATRIN
     Indication: EPILEPSY
     Dosage: 750 MG/ 500 MG
     Route: 048
     Dates: start: 20160319
  3. AFINITOR DISPERZ [Suspect]
     Active Substance: EVEROLIMUS
     Indication: ASTROCYTOMA, LOW GRADE
     Dosage: 3 MG, QD
     Route: 048
     Dates: start: 20160609

REACTIONS (7)
  - Drug level decreased [Unknown]
  - Diarrhoea [Recovering/Resolving]
  - Pharyngitis streptococcal [Recovered/Resolved]
  - Diarrhoea [Recovered/Resolved]
  - Aphthous ulcer [Recovering/Resolving]
  - Pollakiuria [Recovering/Resolving]
  - Thirst [Recovering/Resolving]

NARRATIVE: CASE EVENT DATE: 20160609
